FAERS Safety Report 6400763-X (Version None)
Quarter: 2009Q4

REPORT INFORMATION
  Report Type: 
  Country: None (occurrence: None)
  Receive Date: 20091008
  Receipt Date: 20091001
  Transmission Date: 20100525
  Serious: Yes (Life-Threatening)
  Sender: FDA-Public Use
  Company Number: TCI2009A03950

PATIENT
  Age: 57 Year
  Sex: Male

DRUGS (2)
  1. LANSOPRAZOLE [Suspect]
     Dosage: PER ORAL
     Route: 048
     Dates: start: 20090929, end: 20090930
  2. SUCRALFATE [Concomitant]

REACTIONS (2)
  - ANAPHYLACTOID REACTION [None]
  - ROAD TRAFFIC ACCIDENT [None]
